FAERS Safety Report 8327263-4 (Version None)
Quarter: 2012Q2

REPORT INFORMATION
  Report Type: 
  Country: None (occurrence: None)
  Receive Date: 20120502
  Receipt Date: 20120423
  Transmission Date: 20120825
  Serious: Yes (Hospitalization)
  Sender: FDA-Public Use
  Company Number: DE-AMGEN-DEUSP2012026011

PATIENT
  Age: 64 Year
  Sex: Male

DRUGS (3)
  1. ENBREL [Suspect]
     Indication: ANKYLOSING SPONDYLITIS
     Dosage: 50 MG, 1X WEEKLY
     Dates: start: 20120313
  2. RAMIPRIL [Concomitant]
     Dosage: 5 MG, UNK
  3. TRAMADOL HYDROCHLORIDE [Concomitant]
     Dosage: 100 MG, UNK

REACTIONS (6)
  - WEIGHT DECREASED [None]
  - FEELING COLD [None]
  - PAIN IN EXTREMITY [None]
  - ERYTHEMA [None]
  - FEELING HOT [None]
  - JOINT STIFFNESS [None]
